FAERS Safety Report 10395954 (Version 1)
Quarter: 2014Q1

REPORT INFORMATION
  Report Type: Spontaneous
  Country: US (occurrence: None)
  Receive Date: 20130524
  Receipt Date: 20130524
  Transmission Date: 20141002
  Serious: No
  Sender: FDA-Public Use
  Company Number: PHEH2012US008722

PATIENT
  Age: 30 Year
  Sex: Female

DRUGS (1)
  1. GILENYA (FTY) CAPSULE, 0.5MG [Suspect]
     Indication: MULTIPLE SCLEROSIS
     Route: 048
     Dates: start: 20110405

REACTIONS (8)
  - Oropharyngeal pain [None]
  - Aphonia [None]
  - White blood cell count decreased [None]
  - Gastroenteritis viral [None]
  - Nasopharyngitis [None]
  - Cough [None]
  - Malaise [None]
  - Increased upper airway secretion [None]
